FAERS Safety Report 5720833-9 (Version None)
Quarter: 2008Q2

REPORT INFORMATION
  Report Type: 
  Country: None (occurrence: None)
  Receive Date: 20080429
  Receipt Date: 20080422
  Transmission Date: 20081010
  Serious: Yes (Hospitalization)
  Sender: FDA-Public Use
  Company Number: PHRM2008FR01115

PATIENT
  Age: 58 Year
  Sex: Female

DRUGS (7)
  1. TEMERIT [Concomitant]
  2. ARIMIDEX [Concomitant]
  3. ESIDRIX [Suspect]
     Dosage: 25 MG, BID
     Route: 048
     Dates: start: 20060101, end: 20080108
  4. BURINEX [Suspect]
     Dosage: 1 MG, TID
     Route: 048
     Dates: start: 20060101
  5. COZAAR [Suspect]
     Dosage: 50 MG, QD
     Route: 048
     Dates: start: 20071001, end: 20080108
  6. COLCHIMAX                               /FRA/ [Suspect]
     Indication: HYPERURICAEMIA
  7. ALLOPURINOL [Suspect]
     Indication: HYPERURICAEMIA

REACTIONS (8)
  - ANAEMIA [None]
  - BLOOD CREATININE INCREASED [None]
  - BLOOD UREA INCREASED [None]
  - GENERAL PHYSICAL HEALTH DETERIORATION [None]
  - HAEMOGLOBIN DECREASED [None]
  - OVERDOSE [None]
  - RENAL FAILURE ACUTE [None]
  - TRANSAMINASES INCREASED [None]
